FAERS Safety Report 16651214 (Version 1)
Quarter: 2019Q3

REPORT INFORMATION
  Report Type: Spontaneous
  Country: US (occurrence: US)
  Receive Date: 20190731
  Receipt Date: 20190731
  Transmission Date: 20191004
  Serious: Yes (Life-Threatening, Hospitalization, Other)
  Sender: FDA-Public Use
  Company Number: US-TERSERA THERAPEUTICS LLC-2019TRS001329

PATIENT

DRUGS (4)
  1. HYDROMORPHONE [Suspect]
     Active Substance: HYDROMORPHONE
     Indication: PRODUCT USED FOR UNKNOWN INDICATION
     Dosage: 2.056 MG, QD
     Route: 065
  2. PRIALT [Suspect]
     Active Substance: ZICONOTIDE ACETATE
     Indication: PAIN
     Dosage: 0.719 MCG, QD
     Route: 037
  3. BUPIVACAINE. [Suspect]
     Active Substance: BUPIVACAINE
     Indication: PRODUCT USED FOR UNKNOWN INDICATION
     Dosage: 5.142 MG, QD
     Route: 065
  4. BACLOFEN. [Suspect]
     Active Substance: BACLOFEN
     Indication: PRODUCT USED FOR UNKNOWN INDICATION
     Dosage: 85.7 MCG, QD
     Route: 065

REACTIONS (5)
  - Respiratory failure [Not Recovered/Not Resolved]
  - Dysarthria [Unknown]
  - Mental status changes [Not Recovered/Not Resolved]
  - Sepsis [Unknown]
  - Off label use [Unknown]

NARRATIVE: CASE EVENT DATE: 20190711
